FAERS Safety Report 13555125 (Version 2)
Quarter: 2017Q2

REPORT INFORMATION
  Report Type: Report from Study
  Country: CA (occurrence: CA)
  Receive Date: 20170517
  Receipt Date: 20170629
  Transmission Date: 20170830
  Serious: Yes (Hospitalization, Other)
  Sender: FDA-Public Use
  Company Number: CA-JNJFOC-20170424178

PATIENT
  Age: 67 Year
  Sex: Female
  Weight: 47.7 kg

DRUGS (4)
  1. REMICADE [Suspect]
     Active Substance: INFLIXIMAB
     Indication: CROHN^S DISEASE
     Route: 042
     Dates: start: 20121206
  2. REMICADE [Suspect]
     Active Substance: INFLIXIMAB
     Indication: CROHN^S DISEASE
     Route: 042
     Dates: start: 2012
  3. REMICADE [Suspect]
     Active Substance: INFLIXIMAB
     Indication: CROHN^S DISEASE
     Route: 042
     Dates: start: 20170506
  4. REMICADE [Suspect]
     Active Substance: INFLIXIMAB
     Indication: CROHN^S DISEASE
     Route: 042

REACTIONS (8)
  - Lower respiratory tract infection [Unknown]
  - Frequent bowel movements [Unknown]
  - Catheter site infection [Unknown]
  - Abdominal pain [Unknown]
  - Dizziness [Unknown]
  - Blood potassium increased [Unknown]
  - Hypoglycaemia [Unknown]
  - Haemodialysis [Unknown]

NARRATIVE: CASE EVENT DATE: 201704
